FAERS Safety Report 9173328 (Version 1)
Quarter: 2013Q1

REPORT INFORMATION
  Report Type: Spontaneous
  Country: US (occurrence: None)
  Receive Date: 20130313
  Receipt Date: 20130313
  Transmission Date: 20140127
  Serious: No
  Sender: FDA-Public Use
  Company Number: AEUSA201200321

PATIENT
  Age: 52 Year
  Sex: Female
  Weight: 69.4 kg

DRUGS (10)
  1. GAMUNEX-C [Suspect]
     Indication: PRIMARY IMMUNODEFICIENCY SYNDROME
     Route: 042
     Dates: start: 201203
  2. PROLASTIN-C [Suspect]
     Route: 042
     Dates: start: 201002
  3. WARFARIN [Suspect]
     Indication: CARDIAC ASSISTANCE DEVICE USER
     Route: 048
  4. ALBUTEROL [Concomitant]
  5. SPIRIVA [Concomitant]
  6. ADVAIR [Concomitant]
  7. PRO-AIR [Concomitant]
  8. PULMICORT [Concomitant]
  9. ALPRAZOLAM [Concomitant]
  10. VITAMIN D3 [Concomitant]

REACTIONS (11)
  - Blood pressure increased [None]
  - International normalised ratio increased [None]
  - Hot flush [None]
  - Feeling abnormal [None]
  - Product taste abnormal [None]
  - Gingival bleeding [None]
  - Ocular hyperaemia [None]
  - Epistaxis [None]
  - Heart rate increased [None]
  - Hyperhidrosis [None]
  - Infusion related reaction [None]
